FAERS Safety Report 18529387 (Version 8)
Quarter: 2021Q1

REPORT INFORMATION
  Report Type: Report from Study
  Country: US (occurrence: US)
  Receive Date: 20201120
  Receipt Date: 20210309
  Transmission Date: 20210419
  Serious: Yes (Hospitalization, Other)
  Sender: FDA-Public Use
  Company Number: US-009507513-2010USA002901

PATIENT
  Age: 81 Year
  Sex: Female
  Weight: 88 kg

DRUGS (29)
  1. PEMBROLIZUMAB. [Suspect]
     Active Substance: PEMBROLIZUMAB
     Dosage: C1 D1 2 MG/KG/DOSE, 176MG, Q3W UP TO 4 TIMES
     Route: 042
     Dates: start: 20201120
  2. VITAMIN B (UNSPECIFIED) [Concomitant]
     Active Substance: VITAMIN B
  3. CARBOPLATIN. [Suspect]
     Active Substance: CARBOPLATIN
     Dosage: UNK
     Dates: start: 20210105, end: 202101
  4. ASPIRIN. [Concomitant]
     Active Substance: ASPIRIN
     Dosage: UNK
  5. TYLENOL [Concomitant]
     Active Substance: ACETAMINOPHEN
  6. ALIMTA [Suspect]
     Active Substance: PEMETREXED DISODIUM
     Dosage: UNK
     Dates: start: 20210105
  7. LIPITOR [Concomitant]
     Active Substance: ATORVASTATIN CALCIUM
     Dosage: TAKE 1 TABLET BY MOUTH DAILY
     Route: 048
  8. POTASSIUM (UNSPECIFIED) [Concomitant]
     Active Substance: POTASSIUM
  9. PEMBROLIZUMAB. [Suspect]
     Active Substance: PEMBROLIZUMAB
     Dosage: 200 MG, EVERY THREE WEEKS (Q3W)
     Route: 042
     Dates: start: 20201023, end: 20201023
  10. COQ [Concomitant]
     Dosage: UNK
  11. PEMBROLIZUMAB. [Suspect]
     Active Substance: PEMBROLIZUMAB
     Indication: NON-SMALL CELL LUNG CANCER
     Dosage: 200 MG, EVERY THREE WEEKS (Q3W)
     Route: 042
     Dates: start: 20200911, end: 20200911
  12. CARBOPLATIN. [Suspect]
     Active Substance: CARBOPLATIN
     Dosage: 443 MG, Q3W,C1 D1 UP TO 4 TIMES
     Route: 042
     Dates: start: 20201120
  13. CHOLECALCIFEROL [Concomitant]
     Active Substance: CHOLECALCIFEROL
     Dosage: TAKE 1 TABLET ORALLY DAILY
     Route: 048
  14. ATENOLOL. [Concomitant]
     Active Substance: ATENOLOL
  15. ZOFRAN [Concomitant]
     Active Substance: ONDANSETRON HYDROCHLORIDE
  16. CYANOCOBALAMIN. [Concomitant]
     Active Substance: CYANOCOBALAMIN
  17. PEMBROLIZUMAB. [Suspect]
     Active Substance: PEMBROLIZUMAB
     Dosage: 200 MG, EVERY THREE WEEKS (Q3W)
     Route: 042
     Dates: start: 20201002, end: 20201002
  18. PEMBROLIZUMAB. [Suspect]
     Active Substance: PEMBROLIZUMAB
     Dosage: UNK
     Dates: start: 20210101
  19. ALIMTA [Suspect]
     Active Substance: PEMETREXED DISODIUM
     Dosage: 900MILLIGRAM,Q3W C1 D1 UP TO 4 TIMES
     Route: 042
     Dates: start: 20201120
  20. ECOTRIN [Concomitant]
     Active Substance: ASPIRIN
     Dosage: TAKE 1 TABLET ORALLY DAILY
     Route: 048
  21. TENORMIN [Concomitant]
     Active Substance: ATENOLOL
     Dosage: TAKE 1 TABLET BY MOUTH DAILY
     Route: 048
  22. PRESERVISION AREDS [Concomitant]
     Active Substance: MINERALS\VITAMINS
     Dosage: UNK
  23. VITAMINS (UNSPECIFIED) [Concomitant]
     Active Substance: VITAMINS
     Dosage: UNK
  24. FOLIC ACID. [Concomitant]
     Active Substance: FOLIC ACID
  25. LASIX [Concomitant]
     Active Substance: FUROSEMIDE
  26. PROVENTIL [Suspect]
     Active Substance: ALBUTEROL
     Indication: DYSPNOEA
     Dosage: USE 3 ML VIA NEBULIZER EVERY 4 HOURS AS NEEDED
     Dates: start: 2020
  27. FISH OIL [Concomitant]
     Active Substance: FISH OIL
     Dosage: TAKE I TABLET (1,000 MG (120 MG?180 MG)) ORALLY DAILY PER PATIENT REPORT
     Route: 048
  28. DECADRON [Concomitant]
     Active Substance: DEXAMETHASONE
  29. COMPAZINE [Concomitant]
     Active Substance: PROCHLORPERAZINE MALEATE

REACTIONS (44)
  - Candida infection [Recovering/Resolving]
  - Cellulitis [Unknown]
  - Therapy non-responder [Unknown]
  - Polyuria [Unknown]
  - Rash macular [Unknown]
  - Malignant neoplasm progression [Unknown]
  - Adverse event [Unknown]
  - Panic attack [Unknown]
  - Malaise [Unknown]
  - Dry skin [Unknown]
  - Appetite disorder [Unknown]
  - Lung infiltration malignant [Unknown]
  - Blood magnesium decreased [Unknown]
  - Nausea [Unknown]
  - Peripheral swelling [Not Recovered/Not Resolved]
  - Fatigue [Unknown]
  - Constipation [Unknown]
  - Oedema peripheral [Unknown]
  - Gout [Recovering/Resolving]
  - Laziness [Unknown]
  - Erythema [Unknown]
  - Asthenia [Unknown]
  - Hypoxia [Unknown]
  - Cystitis [Recovering/Resolving]
  - Sepsis [Recovering/Resolving]
  - Cellulitis [Recovering/Resolving]
  - Blood potassium decreased [Unknown]
  - Red blood cell count decreased [Unknown]
  - Fatigue [Unknown]
  - Nervousness [Unknown]
  - Constipation [Unknown]
  - Malignant pleural effusion [Unknown]
  - Cystitis [Unknown]
  - White blood cell count decreased [Unknown]
  - Red blood cell count decreased [Recovered/Resolved]
  - Nervousness [Unknown]
  - Pulmonary hilar enlargement [Unknown]
  - General physical condition abnormal [Unknown]
  - Asthenia [Unknown]
  - Feeling jittery [Unknown]
  - Skin exfoliation [Unknown]
  - Diarrhoea [Unknown]
  - Asthenia [Unknown]
  - Incorrect dose administered [Unknown]

NARRATIVE: CASE EVENT DATE: 2020
